FAERS Safety Report 8855835 (Version 1)
Quarter: 2012Q4

REPORT INFORMATION
  Report Type: Spontaneous
  Country: US (occurrence: None)
  Receive Date: 20121022
  Receipt Date: 20121022
  Transmission Date: 20130627
  Serious: Yes (Life-Threatening, Hospitalization)
  Sender: FDA-Public Use
  Company Number: None

PATIENT
  Sex: Female
  Weight: 166.1 kg

DRUGS (1)
  1. RIVAROXABAN [Suspect]
     Dates: start: 20120818, end: 20120820

REACTIONS (1)
  - Pulmonary embolism [None]
